FAERS Safety Report 7512096-9 (Version None)
Quarter: 2011Q2

REPORT INFORMATION
  Report Type: 
  Country: None (occurrence: None)
  Receive Date: 20110531
  Receipt Date: 20110526
  Transmission Date: 20111010
  Serious: Yes (Life-Threatening, Hospitalization)
  Sender: FDA-Public Use
  Company Number: CA-BAYER-2011-045435

PATIENT
  Age: 12 Year
  Sex: Female
  Weight: 72 kg

DRUGS (1)
  1. YAZ [Suspect]
     Indication: PRODUCT USED FOR UNKNOWN INDICATION
     Dosage: UNK
     Route: 048

REACTIONS (5)
  - HEADACHE [None]
  - SENSORY LOSS [None]
  - INTRACRANIAL PRESSURE INCREASED [None]
  - PRURITUS [None]
  - PAIN IN EXTREMITY [None]
